FAERS Safety Report 8215427-X (Version None)
Quarter: 2012Q1

REPORT INFORMATION
  Report Type: 
  Country: None (occurrence: None)
  Receive Date: 20120316
  Receipt Date: 20120313
  Transmission Date: 20120608
  Serious: Yes (Other)
  Sender: FDA-Public Use
  Company Number: AU-AMGEN-AUSSP2012007153

PATIENT
  Sex: Male

DRUGS (1)
  1. NEUPOGEN [Suspect]
     Indication: NEUTROPENIA

REACTIONS (3)
  - DRUG INEFFECTIVE [None]
  - SEPSIS [None]
  - AUTOIMMUNE NEUTROPENIA [None]
